FAERS Safety Report 13048250 (Version 1)
Quarter: 2016Q4

REPORT INFORMATION
  Report Type: Spontaneous
  Country: US (occurrence: US)
  Receive Date: 20161220
  Receipt Date: 20161220
  Transmission Date: 20170207
  Serious: Yes (Hospitalization)
  Sender: FDA-Public Use
  Company Number: US-RELYPSA-RLY2016004316

PATIENT
  Age: 63 Year
  Sex: Female

DRUGS (18)
  1. METOCLOPRAM [Concomitant]
     Active Substance: METOCLOPRAMIDE
  2. VENLAFAXINE [Concomitant]
     Active Substance: VENLAFAXINE HYDROCHLORIDE
  3. LANTUS [Concomitant]
     Active Substance: INSULIN GLARGINE
  4. FERROUS SULFATE. [Concomitant]
     Active Substance: FERROUS SULFATE
  5. CLOPIDOGREL [Concomitant]
     Active Substance: CLOPIDOGREL BISULFATE
  6. GABAPENTIN. [Concomitant]
     Active Substance: GABAPENTIN
  7. BUMETANIDE. [Concomitant]
     Active Substance: BUMETANIDE
  8. SUCRALFATE. [Concomitant]
     Active Substance: SUCRALFATE
  9. HUMALOG [Concomitant]
     Active Substance: INSULIN LISPRO
  10. ROSUVASTATIN. [Concomitant]
     Active Substance: ROSUVASTATIN
  11. VELTASSA [Suspect]
     Active Substance: PATIROMER
     Indication: MULTIPLE SCLEROSIS
     Dosage: 8.4 G, QD
     Route: 048
     Dates: start: 20161101
  12. ISOSORB                            /07346401/ [Concomitant]
  13. FENOFIBRATE. [Concomitant]
     Active Substance: FENOFIBRATE
  14. CARVEDILOL. [Concomitant]
     Active Substance: CARVEDILOL
  15. LOSARTAN. [Concomitant]
     Active Substance: LOSARTAN
  16. ZETIA [Concomitant]
     Active Substance: EZETIMIBE
  17. RIVASTIGMINE. [Concomitant]
     Active Substance: RIVASTIGMINE
  18. VITAMIN D                          /00107901/ [Concomitant]
     Active Substance: ERGOCALCIFEROL

REACTIONS (3)
  - Blood potassium abnormal [Unknown]
  - Urinary tract infection [Unknown]
  - Off label use [Unknown]

NARRATIVE: CASE EVENT DATE: 20161205
